FAERS Safety Report 6326040-3 (Version None)
Quarter: 2009Q3

REPORT INFORMATION
  Report Type: 
  Country: None (occurrence: None)
  Receive Date: 20090820
  Receipt Date: 20090807
  Transmission Date: 20100115
  Serious: No
  Sender: FDA-Public Use
  Company Number: 007257

PATIENT
  Sex: Female

DRUGS (2)
  1. PLETAL [Suspect]
     Indication: LACUNAR INFARCTION
     Dosage: ORAL
     Route: 048
  2. ASPIRIN [Concomitant]

REACTIONS (1)
  - THALAMUS HAEMORRHAGE [None]
